FAERS Safety Report 17097335 (Version 1)
Quarter: 2019Q4

REPORT INFORMATION
  Report Type: Spontaneous
  Country: US (occurrence: US)
  Receive Date: 20191105
  Receipt Date: 20191105
  Transmission Date: 20200122
  Serious: No
  Sender: FDA-Public Use
  Company Number: None

PATIENT
  Age: 23 Year
  Sex: Male
  Weight: 90.72 kg

DRUGS (8)
  1. ZOLOFT [Concomitant]
     Active Substance: SERTRALINE HYDROCHLORIDE
  2. RISPERDAL [Concomitant]
     Active Substance: RISPERIDONE
  3. ABILIFY [Concomitant]
     Active Substance: ARIPIPRAZOLE
  4. LAMOTRIGINE 25MG TABLET [Suspect]
     Active Substance: LAMOTRIGINE
     Indication: AUTISM SPECTRUM DISORDER
     Route: 048
  5. INTUNIV [Concomitant]
     Active Substance: GUANFACINE HYDROCHLORIDE
  6. LAMICTAL [Concomitant]
     Active Substance: LAMOTRIGINE
  7. LAMOTRIGINE 25MG TABLET [Suspect]
     Active Substance: LAMOTRIGINE
     Indication: AFFECTIVE DISORDER
     Route: 048
  8. METFORMIN [Concomitant]
     Active Substance: METFORMIN HYDROCHLORIDE

REACTIONS (2)
  - Speech disorder [None]
  - Product substitution issue [None]

NARRATIVE: CASE EVENT DATE: 20191021
